FAERS Safety Report 6816521-8 (Version None)
Quarter: 2010Q3

REPORT INFORMATION
  Report Type: 
  Country: None (occurrence: None)
  Receive Date: 20100706
  Receipt Date: 20100115
  Transmission Date: 20110219
  Serious: Yes (Hospitalization, Other)
  Sender: FDA-Public Use
  Company Number: US-ASTRAZENECA-2009SE17830

PATIENT
  Age: 43 Year
  Sex: Female
  Weight: 74.8 kg

DRUGS (15)
  1. SEROQUEL [Suspect]
     Indication: NIGHTMARE
     Route: 048
     Dates: start: 20030101, end: 20080101
  2. SEROQUEL [Suspect]
     Indication: SCHIZOPHRENIA, PARANOID TYPE
     Route: 048
     Dates: start: 20030101, end: 20080101
  3. SEROQUEL [Suspect]
     Indication: DEPRESSION
     Route: 048
     Dates: start: 20030101, end: 20080101
  4. SEROQUEL [Suspect]
     Indication: SCHIZOPHRENIA
     Route: 048
     Dates: start: 20030101, end: 20080101
  5. SEROQUEL [Suspect]
     Route: 048
     Dates: start: 20080624
  6. SEROQUEL [Suspect]
     Route: 048
     Dates: start: 20080624
  7. SEROQUEL [Suspect]
     Route: 048
     Dates: start: 20080624
  8. SEROQUEL [Suspect]
     Route: 048
     Dates: start: 20080624
  9. HALDOL [Concomitant]
     Indication: SCHIZOPHRENIA
     Dates: start: 20060101
  10. TRAZODONE HYDROCHLORIDE [Concomitant]
     Indication: BIPOLAR DISORDER
     Dates: start: 20060101
  11. TRAZODONE HYDROCHLORIDE [Concomitant]
     Dates: start: 20080101
  12. PAXIL [Concomitant]
     Indication: DEPRESSION
     Dates: start: 20060101
  13. ABILIFY [Concomitant]
     Dates: start: 20090101
  14. GEODON [Concomitant]
     Dates: start: 20080101
  15. RANITIDINE [Concomitant]
     Dates: start: 20060625

REACTIONS (10)
  - ADVERSE DRUG REACTION [None]
  - DIABETES MELLITUS INADEQUATE CONTROL [None]
  - JOINT INJURY [None]
  - NAUSEA [None]
  - OBESITY [None]
  - SELF INJURIOUS BEHAVIOUR [None]
  - SUICIDAL IDEATION [None]
  - TARDIVE DYSKINESIA [None]
  - TYPE 2 DIABETES MELLITUS [None]
  - VOMITING [None]
